FAERS Safety Report 5896035-2 (Version None)
Quarter: 2008Q3

REPORT INFORMATION
  Report Type: 
  Country: None (occurrence: None)
  Receive Date: 20080924
  Receipt Date: 20080715
  Transmission Date: 20090109
  Serious: Yes (Hospitalization)
  Sender: FDA-Public Use
  Company Number: CA-BRISTOL-MYERS SQUIBB COMPANY-13910450

PATIENT
  Age: 80 Year
  Sex: Male

DRUGS (20)
  1. PLACEBO [Suspect]
     Indication: THROMBOSIS PROPHYLAXIS
     Dosage: SC 31-AUG-2007 TO 13-SEP-2007 COURSE-1.
     Route: 048
     Dates: start: 20070831, end: 20070913
  2. ENOXAPARIN SODIUM [Suspect]
     Indication: THROMBOSIS PROPHYLAXIS
     Route: 058
     Dates: start: 20070831, end: 20070913
  3. FERROUS GLUCONATE [Concomitant]
     Indication: MINERAL SUPPLEMENTATION
     Route: 048
     Dates: start: 20070706
  4. OMEPRAZOLE [Concomitant]
     Indication: GASTROOESOPHAGEAL REFLUX DISEASE
     Route: 048
     Dates: start: 20020101
  5. CEFAZOLIN [Concomitant]
     Indication: ANTIBIOTIC PROPHYLAXIS
     Dosage: ALSO TAKEN FROM UNKNOWN DATE TILL 12 SEP 2007,INDICATION:INFECTION PROPHYLAXIS
     Route: 042
     Dates: start: 20070830, end: 20070912
  6. KETOROLAC TROMETHAMINE [Concomitant]
     Indication: PAIN
     Route: 030
     Dates: start: 20070830, end: 20070901
  7. MORPHINE [Concomitant]
     Indication: PAIN PROPHYLAXIS
     Route: 030
     Dates: start: 20070830, end: 20070831
  8. ACETAMINOPHEN [Concomitant]
     Indication: PAIN PROPHYLAXIS
     Route: 048
     Dates: start: 20070830
  9. GABAPENTIN [Concomitant]
     Indication: PAIN PROPHYLAXIS
     Route: 048
     Dates: start: 20070830, end: 20070830
  10. METAMUCIL [Concomitant]
     Indication: CONSTIPATION PROPHYLAXIS
     Route: 048
     Dates: start: 20070901, end: 20070901
  11. MILK OF MAGNESIA [Concomitant]
     Indication: CONSTIPATION PROPHYLAXIS
     Route: 048
     Dates: start: 20070901, end: 20070901
  12. SODIUM PHOSPHATES [Concomitant]
     Indication: CONSTIPATION
     Dates: start: 20070902, end: 20070902
  13. FUROSEMIDE [Concomitant]
     Indication: DYSPNOEA
     Dosage: ALSO TAKEN IN 04SEP07 TO 04SEP07-INDICATION:POST INFUSION DIURESIS.
     Route: 042
     Dates: start: 20070901, end: 20070901
  14. PERCOCET [Concomitant]
     Route: 048
     Dates: start: 20070831
  15. GLYCERIN SUPPOSITORY [Concomitant]
     Indication: CONSTIPATION PROPHYLAXIS
     Dates: start: 20070904, end: 20070904
  16. INDOMETHACIN [Concomitant]
     Indication: ARTHRITIS
     Route: 048
     Dates: start: 20070907
  17. AMPICILLIN [Concomitant]
     Indication: INFECTION
     Route: 042
     Dates: start: 20070907, end: 20070912
  18. SENOKOT [Concomitant]
     Indication: CONSTIPATION PROPHYLAXIS
     Route: 048
     Dates: start: 20070908
  19. CO-TRIMOXAZOLE [Concomitant]
     Indication: URINARY TRACT INFECTION
     Route: 048
     Dates: start: 20070906, end: 20070907
  20. CELECOXIB [Concomitant]
     Indication: PAIN PROPHYLAXIS
     Route: 048
     Dates: start: 20070830, end: 20070830

REACTIONS (1)
  - GASTROINTESTINAL HAEMORRHAGE [None]
